FAERS Safety Report 4357687-1 (Version None)
Quarter: 2004Q2

REPORT INFORMATION
  Report Type: 
  Country: None (occurrence: None)
  Receive Date: 20040513
  Receipt Date: 20040129
  Transmission Date: 20050107
  Serious: Yes (Disabling)
  Sender: FDA-Public Use
  Company Number: FR-ROCHE-357646

PATIENT
  Age: 48 Year
  Sex: Female
  Weight: 58 kg

DRUGS (8)
  1. HYPNOVEL (INJ) [Suspect]
     Indication: DRUG USE FOR UNKNOWN INDICATION
     Route: 042
     Dates: start: 20031117, end: 20031117
  2. MARCAINE [Suspect]
     Indication: DRUG USE FOR UNKNOWN INDICATION
     Route: 037
     Dates: start: 20031117, end: 20031117
  3. ACETAMINOPHEN [Suspect]
     Indication: DRUG USE FOR UNKNOWN INDICATION
     Dosage: 17 NOV 2003: AT 16:00 AND 22:00.  18 NOV 2003: AT 04:00 AND 10:00.
     Route: 042
     Dates: start: 20031117, end: 20031118
  4. NAROPIN [Suspect]
     Indication: DRUG USE FOR UNKNOWN INDICATION
     Dosage: BY EPIDURAL BLOCK DURING SURGERY.
     Route: 065
     Dates: start: 20031117, end: 20031117
  5. NAROPIN [Suspect]
     Dosage: UNTIL 18 NOV 2003 03:00: 100 ML BY EPIDURAL BLOCK USING AN ELECTRIC SYRINGE FOLLOWED BY 6 - 12 ML/H+
     Route: 065
     Dates: start: 20031117, end: 20031119
  6. SUFENTA [Suspect]
     Indication: DRUG USE FOR UNKNOWN INDICATION
     Dosage: 17 NOV 2003: 3MCG IN SPINAL ANAESTHESIA DURING SURGERY FOLLOWED BY 15 MCG BY EPIDURAL BLOCK USING A+
     Route: 065
     Dates: start: 20031117, end: 20031118
  7. ROHYPNOL [Concomitant]
     Indication: PREMEDICATION
     Dosage: 16 NOV 2003: PREMEDICATION. 17 NOV 2003: GIVEN AT 07:30.
     Route: 065
     Dates: start: 20031116, end: 20031117
  8. LUTENYL [Concomitant]
     Dosage: 1 DOSE FORM FOR 20 DAYS FOLLOWED BY 8 DAYS OF REST.
     Dates: start: 20030215

REACTIONS (2)
  - HYPOAESTHESIA [None]
  - MONOPLEGIA [None]
